FAERS Safety Report 5773809-X (Version None)
Quarter: 2008Q2

REPORT INFORMATION
  Report Type: 
  Country: None (occurrence: None)
  Receive Date: 20080616
  Receipt Date: 20080606
  Transmission Date: 20081010
  Serious: Yes (Hospitalization)
  Sender: FDA-Public Use
  Company Number: JP-ABBOTT-08P-087-0457003-00

PATIENT
  Age: 86 Year
  Sex: Male

DRUGS (1)
  1. LEUPLIN SR FOR INJECTION KIT [Suspect]
     Indication: PROSTATE CANCER STAGE IV
     Dosage: 11.25 MG, 1 IN 12 WK
     Dates: start: 20060522

REACTIONS (3)
  - ANAEMIA [None]
  - BRAIN STEM INFARCTION [None]
  - EOSINOPHIL COUNT INCREASED [None]
